FAERS Safety Report 17210105 (Version 1)
Quarter: 2019Q4

REPORT INFORMATION
  Report Type: Spontaneous
  Country: AT (occurrence: AT)
  Receive Date: 20191227
  Receipt Date: 20191227
  Transmission Date: 20200122
  Serious: Yes (Hospitalization)
  Sender: FDA-Public Use
  Company Number: AT-ANIPHARMA-2019-AT-000024

PATIENT
  Age: 52 Year
  Sex: Female
  Weight: 57 kg

DRUGS (4)
  1. ARIMIDEX [Suspect]
     Active Substance: ANASTROZOLE
     Indication: HER-2 POSITIVE BREAST CANCER
     Dosage: 1 MG DAILY
     Route: 048
     Dates: start: 201711
  2. PROLIA [Suspect]
     Active Substance: DENOSUMAB
     Dosage: 60 MG EVERY SIX
     Route: 058
     Dates: start: 201810
  3. CALCIDURAN [Suspect]
     Active Substance: ASCORBIC ACID\CALCIUM PHOSPHATE\CHOLECALCIFEROL\CITRIC ACID MONOHYDRATE
     Dosage: 600MG/ 400I.E., TWO TIMES A DAY
     Route: 048
     Dates: start: 201907
  4. EUTHYROX [Suspect]
     Active Substance: LEVOTHYROXINE SODIUM
     Dosage: 88 UG DAILY
     Route: 065
     Dates: start: 201801

REACTIONS (5)
  - Tendon rupture [Recovering/Resolving]
  - Tenosynovitis [Not Recovered/Not Resolved]
  - Tendon pain [Recovered/Resolved]
  - Radius fracture [Recovered/Resolved]
  - Oedema peripheral [Recovering/Resolving]
